FAERS Safety Report 7972094-8 (Version None)
Quarter: 2011Q4

REPORT INFORMATION
  Report Type: 
  Country: None (occurrence: None)
  Receive Date: 20111212
  Receipt Date: 20111202
  Transmission Date: 20120403
  Serious: Yes (Hospitalization, Other)
  Sender: FDA-Public Use
  Company Number: US-ASTRAZENECA-2011SE73531

PATIENT
  Age: 58 Year
  Sex: Female

DRUGS (2)
  1. PRILOSEC [Suspect]
     Route: 048
  2. NEXIUM [Suspect]
     Route: 048

REACTIONS (10)
  - PANCREATITIS [None]
  - WEIGHT DECREASED [None]
  - HEPATIC FAILURE [None]
  - HYPERTENSION [None]
  - VOMITING [None]
  - RENAL FAILURE [None]
  - NEOPLASM [None]
  - DRUG INEFFECTIVE [None]
  - GASTRIC CANCER [None]
  - DIARRHOEA [None]
